FAERS Safety Report 18841874 (Version 3)
Quarter: 2021Q2

REPORT INFORMATION
  Report Type: Report from Study
  Country: None (occurrence: FR)
  Receive Date: 20210204
  Receipt Date: 20210511
  Transmission Date: 20210717
  Serious: Yes (Hospitalization, Other)
  Sender: FDA-Public Use
  Company Number: FR-ABBVIE-21K-056-3757713-00

PATIENT
  Age: 77 Year
  Sex: Male

DRUGS (2)
  1. DUODOPA [Suspect]
     Active Substance: CARBIDOPA\LEVODOPA
     Indication: PARKINSON^S DISEASE
     Dosage: 13 ML MORNING DOSE.
     Route: 050
     Dates: start: 201803
  2. DUODOPA [Suspect]
     Active Substance: CARBIDOPA\LEVODOPA
     Dosage: 7.2 ML/H CONTINUOUS DOSE FROM 7 H TO 22 H 30.
     Route: 050

REACTIONS (7)
  - COVID-19 [Unknown]
  - Off label use [Unknown]
  - Compulsive hoarding [Unknown]
  - Behaviour disorder [Unknown]
  - Device expulsion [Unknown]
  - Dopamine dysregulation syndrome [Not Recovered/Not Resolved]
  - Affective disorder [Unknown]

NARRATIVE: CASE EVENT DATE: 20210130
